FAERS Safety Report 11480478 (Version 2)
Quarter: 2015Q3

REPORT INFORMATION
  Report Type: Report from Study
  Country: GB (occurrence: GB)
  Receive Date: 20150909
  Receipt Date: 20150918
  Transmission Date: 20151125
  Serious: Yes (Hospitalization)
  Sender: FDA-Public Use
  Company Number: GB-AMGEN-GBRSL2015091625

PATIENT
  Sex: Male

DRUGS (1)
  1. ARANESP [Suspect]
     Active Substance: DARBEPOETIN ALFA
     Indication: PRODUCT USED FOR UNKNOWN INDICATION
     Dosage: 20 MUG, QWK
     Route: 065

REACTIONS (1)
  - Haemoglobin decreased [Unknown]
